FAERS Safety Report 12222066 (Version 1)
Quarter: 2016Q1

REPORT INFORMATION
  Report Type: Spontaneous
  Country: US (occurrence: US)
  Receive Date: 20160330
  Receipt Date: 20160330
  Transmission Date: 20160526
  Serious: No
  Sender: FDA-Public Use
  Company Number: US-MYLANLABS-2015M1016662

PATIENT
  Age: 88 Year
  Sex: Female

DRUGS (4)
  1. FENTANYL. [Suspect]
     Active Substance: FENTANYL
     Dosage: 25 ?G, QH, CHANGED Q72H
     Route: 062
     Dates: start: 20150505, end: 20150508
  2. FENTANYL. [Suspect]
     Active Substance: FENTANYL
     Indication: BONE PAIN
     Dosage: 12.5 ?G, QH, CHANGED Q72H
     Route: 062
     Dates: start: 20150430, end: 20150504
  3. FENTANYL TRANSDERMAL SYSTEM [Suspect]
     Active Substance: FENTANYL
     Indication: BONE PAIN
     Dosage: 25 ?G, QH, CHANGED Q72H
     Route: 062
     Dates: start: 20150508
  4. MIRALAX [Concomitant]
     Active Substance: POLYETHYLENE GLYCOL 3350
     Indication: CONSTIPATION

REACTIONS (3)
  - Drug ineffective [Not Recovered/Not Resolved]
  - Abdominal pain [Not Recovered/Not Resolved]
  - Somnolence [Recovered/Resolved]

NARRATIVE: CASE EVENT DATE: 20150430
